FAERS Safety Report 7454523-1 (Version None)
Quarter: 2011Q2

REPORT INFORMATION
  Report Type: 
  Country: None (occurrence: None)
  Receive Date: 20110503
  Receipt Date: 20110426
  Transmission Date: 20111010
  Serious: Yes (Other)
  Sender: FDA-Public Use
  Company Number: PHHY2010RU89282

PATIENT
  Age: 68 Year
  Sex: Female

DRUGS (2)
  1. ACLASTA [Suspect]
     Indication: OSTEOPOROSIS
     Dosage: UNK
     Dates: start: 20081222
  2. ACLASTA [Suspect]
     Dosage: UNK
     Dates: start: 20100104

REACTIONS (3)
  - HYPOKINESIA [None]
  - LUMBAR VERTEBRAL FRACTURE [None]
  - BACK PAIN [None]
